FAERS Safety Report 23636291 (Version 1)
Quarter: 2024Q1

REPORT INFORMATION
  Report Type: Spontaneous
  Country: US (occurrence: None)
  Receive Date: 20240314
  Receipt Date: 20240314
  Transmission Date: 20240409
  Serious: Yes (Hospitalization)
  Sender: FDA-Public Use
  Company Number: None

PATIENT
  Age: 58 Year
  Sex: Female

DRUGS (10)
  1. GAMUNEX-C [Suspect]
     Active Substance: HUMAN IMMUNOGLOBULIN G
     Indication: Immunodeficiency common variable
     Dosage: ? FREQ: INFUSE 35GM (350ML) INTRAVENOUSLY EVERY 4 WEEKS VIA CURLIN PUMP
     Route: 011
     Dates: start: 20210109
  2. ACETAMINOPHEN [Concomitant]
     Active Substance: ACETAMINOPHEN
  3. ALBUTEROL AER HFA [Concomitant]
  4. ALLEGRA ALRG [Concomitant]
  5. ALLEGRA D-12 HOUR [Concomitant]
     Active Substance: FEXOFENADINE HYDROCHLORIDE\PSEUDOEPHEDRINE HYDROCHLORIDE
  6. AZELASTINE SPR 0.1% [Concomitant]
  7. AZITHROMYCIN [Concomitant]
     Active Substance: AZITHROMYCIN
  8. BOOSTRIX [Concomitant]
     Active Substance: TETANUS TOXOID, REDUCED DIPHTHERIA TOXOID AND ACELLULAR PERTUSSIS VACCINE, ADSORBED ANTIGENS
  9. CABERGOLINE [Concomitant]
     Active Substance: CABERGOLINE
  10. CALCIUM\VITAMIN D [Concomitant]
     Active Substance: CALCIUM\VITAMIN D

REACTIONS (6)
  - Pneumonia [None]
  - COVID-19 [None]
  - Gait disturbance [None]
  - Palpitations [None]
  - Brain fog [None]
  - Blood pressure fluctuation [None]

NARRATIVE: CASE EVENT DATE: 20240101
